FAERS Safety Report 8239960-X (Version None)
Quarter: 2012Q1

REPORT INFORMATION
  Report Type: 
  Country: None (occurrence: None)
  Receive Date: 20120309
  Receipt Date: 20110429
  Transmission Date: 20120608
  Serious: Yes (Hospitalization)
  Sender: FDA-Public Use
  Company Number: PHHY2011US36870

PATIENT
  Age: 38 Year
  Sex: Female

DRUGS (3)
  1. ACETAMINOPHEN [Concomitant]
  2. IBUPROFEN [Concomitant]
  3. EXTAVIA [Suspect]
     Indication: MULTIPLE SCLEROSIS
     Dosage: 0.125 MG, QOD, SUBCUTANEOUS
     Route: 058
     Dates: start: 20110426

REACTIONS (7)
  - MIGRAINE [None]
  - INFLUENZA LIKE ILLNESS [None]
  - FEELING COLD [None]
  - HYPERHIDROSIS [None]
  - ABDOMINAL DISCOMFORT [None]
  - MULTIPLE SCLEROSIS RELAPSE [None]
  - HEADACHE [None]
